FAERS Safety Report 9060814 (Version 1)
Quarter: 2013Q1

REPORT INFORMATION
  Report Type: Spontaneous
  Country: US (occurrence: US)
  Receive Date: 20130204
  Receipt Date: 20130204
  Transmission Date: 20140127
  Serious: No
  Sender: FDA-Public Use
  Company Number: US-009507513-1302USA000684

PATIENT
  Sex: Female

DRUGS (3)
  1. DORZOLAMIDE HYDROCHLORIDE (+) TIMOLOL MALEATE [Suspect]
     Dosage: 2 GTT (DROPS) PER DAY PER EYE, QD
     Route: 047
  2. LOTEMAX [Concomitant]
  3. LUMIGAN [Concomitant]

REACTIONS (1)
  - Eye irritation [Recovered/Resolved]
